FAERS Safety Report 24995246 (Version 2)
Quarter: 2025Q2

REPORT INFORMATION
  Report Type: Spontaneous
  Country: AU (occurrence: AU)
  Receive Date: 20250221
  Receipt Date: 20250408
  Transmission Date: 20250716
  Serious: No
  Sender: PFIZER
  Company Number: AU-PFIZER INC-202500037341

PATIENT
  Age: 34 Year
  Sex: Female

DRUGS (1)
  1. DEPO-PROVERA [Suspect]
     Active Substance: MEDROXYPROGESTERONE ACETATE

REACTIONS (2)
  - Device physical property issue [Unknown]
  - Device breakage [Unknown]
